FAERS Safety Report 16215214 (Version 2)
Quarter: 2020Q1

REPORT INFORMATION
  Report Type: Report from Study
  Country: US (occurrence: US)
  Receive Date: 20190419
  Receipt Date: 20200227
  Transmission Date: 20200409
  Serious: No
  Sender: FDA-Public Use
  Company Number: US-AMGEN-USASP2019059749

PATIENT
  Age: 59 Year
  Sex: Female

DRUGS (2)
  1. ENBREL [Suspect]
     Active Substance: ETANERCEPT
     Dosage: 50 MILLIGRAM, QWK
     Route: 065
  2. ENBREL [Suspect]
     Active Substance: ETANERCEPT
     Indication: RHEUMATOID ARTHRITIS
     Dosage: 50 MILLIGRAM, QWK
     Route: 065
     Dates: start: 20180917

REACTIONS (13)
  - Injection site swelling [Unknown]
  - Decreased appetite [Unknown]
  - Influenza [Unknown]
  - Device issue [Unknown]
  - Injection site pain [Unknown]
  - Pain [Unknown]
  - Incorrect dose administered by device [Unknown]
  - Visual impairment [Unknown]
  - Weight decreased [Unknown]
  - Drug hypersensitivity [Unknown]
  - Alopecia [Unknown]
  - Tremor [Not Recovered/Not Resolved]
  - Dry skin [Unknown]

NARRATIVE: CASE EVENT DATE: 20190412
